FAERS Safety Report 12467539 (Version 2)
Quarter: 2016Q2

REPORT INFORMATION
  Report Type: Spontaneous
  Country: CR (occurrence: CA)
  Receive Date: 20160615
  Receipt Date: 20160621
  Transmission Date: 20160815
  Serious: Yes (Death, Other)
  Sender: FDA-Public Use
  Company Number: CR-JNJFOC-20160610287

PATIENT

DRUGS (2)
  1. ACETAMINOPHEN. [Suspect]
     Active Substance: ACETAMINOPHEN
     Route: 065
  2. ACETAMINOPHEN. [Suspect]
     Active Substance: ACETAMINOPHEN
     Indication: PRODUCT USED FOR UNKNOWN INDICATION
     Route: 065

REACTIONS (15)
  - Lethargy [Unknown]
  - Hyperhidrosis [Unknown]
  - Multiple organ dysfunction syndrome [Fatal]
  - Encephalopathy [Unknown]
  - Acute kidney injury [Unknown]
  - Pallor [Unknown]
  - Toxicity to various agents [Fatal]
  - Malaise [Unknown]
  - Acute hepatic failure [Unknown]
  - Lactic acidosis [Unknown]
  - Hypoglycaemia [Unknown]
  - Vomiting [Unknown]
  - Hepatic enzyme increased [Unknown]
  - Hepatotoxicity [Fatal]
  - Nausea [Unknown]
